FAERS Safety Report 20355389 (Version 2)
Quarter: 2022Q1

REPORT INFORMATION
  Report Type: Spontaneous
  Country: US (occurrence: US)
  Receive Date: 20220120
  Receipt Date: 20220204
  Transmission Date: 20220423
  Serious: Yes (Hospitalization, Other)
  Sender: FDA-Public Use
  Company Number: US-AMGEN-USASP2022003680

PATIENT
  Age: 76 Year
  Sex: Female

DRUGS (3)
  1. PROLIA [Suspect]
     Active Substance: DENOSUMAB
     Indication: Osteoporosis postmenopausal
     Dosage: 60 MILLIGRAM, Q6MO
     Route: 065
  2. PROLIA [Suspect]
     Active Substance: DENOSUMAB
     Indication: Osteopenia
  3. OFZEN [Concomitant]
     Indication: Lung disorder

REACTIONS (9)
  - Pathological fracture [Unknown]
  - Thrombosis [Unknown]
  - Back pain [Unknown]
  - Hemisection of tooth [Unknown]
  - Off label use [Unknown]
  - Nausea [Unknown]
  - Gait inability [Unknown]
  - Dental caries [Unknown]
  - Dizziness [Unknown]

NARRATIVE: CASE EVENT DATE: 20210101
